FAERS Safety Report 8275573-1 (Version None)
Quarter: 2012Q2

REPORT INFORMATION
  Report Type: 
  Country: None (occurrence: None)
  Receive Date: 20120412
  Receipt Date: 20120403
  Transmission Date: 20120825
  Serious: Yes (Hospitalization)
  Sender: FDA-Public Use
  Company Number: US-BIOGENIDEC-2012BI002625

PATIENT
  Age: 56 Year
  Sex: Female

DRUGS (18)
  1. LANTUS [Concomitant]
     Indication: DIABETES MELLITUS
  2. CYMBALTA [Concomitant]
  3. PHENAZOPYRIDINE HCL TAB [Concomitant]
  4. TYSABRI [Suspect]
     Indication: RELAPSING-REMITTING MULTIPLE SCLEROSIS
     Route: 042
     Dates: start: 20091214
  5. CIPROFLOXACIN HYDROCHLORIDE [Concomitant]
  6. LEXAPRO [Concomitant]
  7. SULFAMETHOXAZOLE [Concomitant]
  8. HYDROCODONE BITARTRATE AND ACETAMINOPHEN [Concomitant]
  9. NOVOLOG [Concomitant]
     Indication: DIABETES MELLITUS
  10. LABETALOL HCL [Concomitant]
  11. AMLODIPINE [Concomitant]
  12. DERMASARRA [Concomitant]
  13. ACIPHEX [Concomitant]
  14. COREGARD [Concomitant]
  15. CLONIDINE HCL [Concomitant]
  16. ALPRAZOLAM [Concomitant]
  17. VALTURNA [Concomitant]
  18. OXYBUTYNIN [Concomitant]

REACTIONS (2)
  - TREATMENT FAILURE [None]
  - EMBOLIC STROKE [None]
